FAERS Safety Report 11650484 (Version 12)
Quarter: 2018Q1

REPORT INFORMATION
  Report Type: Report from Study
  Country: US (occurrence: US)
  Receive Date: 20151021
  Receipt Date: 20180327
  Transmission Date: 20180508
  Serious: Yes (Other)
  Sender: FDA-Public Use
  Company Number: PHEH2015US020953

PATIENT
  Age: 42 Year
  Sex: Female
  Weight: 55.5 kg

DRUGS (5)
  1. CLARITIN [Concomitant]
     Active Substance: LORATADINE
     Indication: PRODUCT USED FOR UNKNOWN INDICATION
     Dosage: 10 MG, QD (PRN)
     Route: 048
  2. AFINITOR [Suspect]
     Active Substance: EVEROLIMUS
     Indication: ASTROCYTOMA, LOW GRADE
     Dosage: 10 MG, QD
     Route: 048
     Dates: start: 20160403
  3. VICKS NYQUIL [Concomitant]
     Active Substance: ACETAMINOPHEN\DEXTROMETHORPHAN HYDROBROMIDE\DOXYLAMINE SUCCINATE
     Indication: PRODUCT USED FOR UNKNOWN INDICATION
     Dosage: 1 DF, QD
     Route: 048
  4. AFINITOR [Suspect]
     Active Substance: EVEROLIMUS
     Indication: ANGIOMYOLIPOMA
     Dosage: 10 MG, QD
     Route: 048
     Dates: start: 20150907
  5. BIOTIN [Concomitant]
     Active Substance: BIOTIN
     Indication: PRODUCT USED FOR UNKNOWN INDICATION
     Dosage: 5 MG, QD
     Route: 048

REACTIONS (27)
  - Basophil count increased [Unknown]
  - Menorrhagia [Unknown]
  - Stomatitis [Recovered/Resolved]
  - Mucosal inflammation [Recovered/Resolved with Sequelae]
  - Eosinophil count increased [Recovering/Resolving]
  - Rash [Recovered/Resolved]
  - Mouth ulceration [Unknown]
  - Cough [Unknown]
  - Liver function test abnormal [Unknown]
  - Renal atrophy [Not Recovered/Not Resolved]
  - Blood albumin decreased [Unknown]
  - Blood creatinine abnormal [Unknown]
  - Blood pressure increased [Unknown]
  - Haematocrit decreased [Unknown]
  - Creatinine renal clearance abnormal [Unknown]
  - Contusion [Not Recovered/Not Resolved]
  - Vitamin D decreased [Unknown]
  - Hypocalcaemia [Not Recovered/Not Resolved]
  - Aspartate aminotransferase decreased [Unknown]
  - Mean cell haemoglobin concentration decreased [Unknown]
  - Rash [Recovered/Resolved with Sequelae]
  - Menstruation irregular [Not Recovered/Not Resolved]
  - Nasopharyngitis [Recovering/Resolving]
  - White blood cell count abnormal [Unknown]
  - Haemoglobin decreased [Unknown]
  - Red cell distribution width increased [Unknown]
  - Platelet count abnormal [Unknown]

NARRATIVE: CASE EVENT DATE: 20151014
